FAERS Safety Report 8465862-X (Version None)
Quarter: 2012Q2

REPORT INFORMATION
  Report Type: 
  Country: None (occurrence: None)
  Receive Date: 20120626
  Receipt Date: 20120621
  Transmission Date: 20120825
  Serious: Yes (Other)
  Sender: FDA-Public Use
  Company Number: US-PFIZER INC-2012150020

PATIENT
  Sex: Female

DRUGS (10)
  1. ULTRAM [Concomitant]
     Indication: PAIN
     Dosage: 50 MG, 1 TAB(S) ORALLY EVERY 4 HOURS PRN (AS NEEDED FOR PAIN)
     Route: 048
     Dates: start: 20110210
  2. PROAIR HFA [Concomitant]
     Indication: DYSPNOEA
     Dosage: 90 MCG/ACTUATION AEROSOL, 2 PUFFS BY INHALATION ROUTE EVERY 6 HOURS AS NEEDED
     Route: 055
  3. CELEBREX [Suspect]
     Indication: PAIN
     Dosage: 200 MG, 1X/DAY PRN
     Route: 048
     Dates: start: 20111012
  4. GEMFIBROZIL [Concomitant]
     Dosage: 600 MG, 2X/DAY (30 MINUTES BEFORE MEALS)
     Route: 048
     Dates: start: 20120403
  5. FISH OIL [Concomitant]
     Dosage: UNK
  6. MICARDIS [Concomitant]
     Dosage: 40 MG, 1X/DAY
     Route: 048
     Dates: start: 20111228
  7. LORATADINE [Concomitant]
     Indication: HYPERSENSITIVITY
     Dosage: 10 MG, 1X/DAY (PRN)
     Route: 048
     Dates: start: 20120403
  8. LISINOPRIL AND HYDROCHLOROTHIAZIDE [Concomitant]
     Indication: BLOOD PRESSURE
     Dosage: 20-25 MG, 1X/DAY
     Route: 048
     Dates: start: 20120403
  9. CRESTOR [Concomitant]
     Dosage: 20 MG, 1X/DAY (AT BEDTIME)
     Route: 048
     Dates: start: 20111228
  10. MELOXICAM [Concomitant]
     Dosage: 15 MG, 1X/DAY (15MG KIT )
     Route: 048
     Dates: start: 20120403

REACTIONS (2)
  - UTERINE DISORDER [None]
  - BACK PAIN [None]
